FAERS Safety Report 8924842 (Version 1)
Quarter: 2012Q4

REPORT INFORMATION
  Report Type: 
  Country: US (occurrence: US)
  Receive Date: 20121126
  Receipt Date: 20121126
  Transmission Date: 20130627
  Serious: No
  Sender: FDA-Public Use
  Company Number: US-PFIZER INC-2012291855

PATIENT
  Age: 90 Year
  Sex: Female
  Weight: 90.7 kg

DRUGS (4)
  1. TOVIAZ [Suspect]
     Indication: URINARY INCONTINENCE
     Dosage: 4 mg, 1x/day
     Route: 048
     Dates: start: 201210, end: 20121119
  2. INSULIN [Concomitant]
     Indication: DIABETES
     Dosage: UNK
  3. PLAVIX [Concomitant]
     Dosage: UNK
  4. METOPROLOL [Concomitant]
     Dosage: UNK

REACTIONS (1)
  - Urinary incontinence [Unknown]
